FAERS Safety Report 18133600 (Version 17)
Quarter: 2021Q4

REPORT INFORMATION
  Report Type: Report from Study
  Country: CA (occurrence: CA)
  Receive Date: 20200811
  Receipt Date: 20211222
  Transmission Date: 20220303
  Serious: Yes (Hospitalization, Other)
  Sender: FDA-Public Use
  Company Number: CA-BIOGEN-2020BI00908460

PATIENT
  Sex: Male

DRUGS (9)
  1. TYSABRI [Suspect]
     Active Substance: NATALIZUMAB
     Indication: Multiple sclerosis
     Dosage: INFUSED OVER 1 HOUR
     Route: 042
     Dates: start: 20141104
  2. TYSABRI [Suspect]
     Active Substance: NATALIZUMAB
     Dosage: INFUSED OVER 1 HOUR
     Route: 042
     Dates: start: 20141104
  3. TYSABRI [Suspect]
     Active Substance: NATALIZUMAB
     Dosage: INFUSED OVER 1 HOUR
     Route: 042
     Dates: start: 20141104
  4. TYSABRI [Suspect]
     Active Substance: NATALIZUMAB
     Dosage: INFUSED OVER 1 HOUR
     Route: 042
     Dates: start: 20141104
  5. TYSABRI [Suspect]
     Active Substance: NATALIZUMAB
     Dosage: INFUSED OVER 1 HOUR
     Route: 042
     Dates: start: 20141104
  6. DILAUDID [Suspect]
     Active Substance: HYDROMORPHONE HYDROCHLORIDE
     Indication: Oral disorder
     Dosage: 2 MG PO PRN
     Route: 048
  7. CORTISONE [Suspect]
     Active Substance: CORTISONE
     Indication: Scar
     Route: 065
  8. TELMISARTAN [Concomitant]
     Active Substance: TELMISARTAN
     Indication: Blood pressure measurement
     Route: 065
  9. AMLODIPINE [Concomitant]
     Active Substance: AMLODIPINE BESYLATE
     Indication: Blood pressure measurement
     Route: 065

REACTIONS (23)
  - Crohn^s disease [Not Recovered/Not Resolved]
  - Intestinal obstruction [Recovered/Resolved]
  - Diabetes mellitus inadequate control [Unknown]
  - Hyperglycaemia [Unknown]
  - Aphonia [Unknown]
  - Mobility decreased [Unknown]
  - Procedural pain [Recovered/Resolved]
  - Dysuria [Unknown]
  - Accidental overdose [Unknown]
  - Scar [Not Recovered/Not Resolved]
  - Malaise [Not Recovered/Not Resolved]
  - Oral disorder [Recovered/Resolved]
  - Aphasia [Recovered/Resolved]
  - Musculoskeletal stiffness [Recovered/Resolved]
  - Hypertension [Unknown]
  - Postoperative wound infection [Unknown]
  - Incision site impaired healing [Unknown]
  - Weight decreased [Unknown]
  - Abdominal pain upper [Not Recovered/Not Resolved]
  - Abdominal pain [Unknown]
  - Depression [Unknown]
  - Fatigue [Unknown]
  - Headache [Recovered/Resolved with Sequelae]

NARRATIVE: CASE EVENT DATE: 20150101
